FAERS Safety Report 8457713-4 (Version None)
Quarter: 2012Q2

REPORT INFORMATION
  Report Type: 
  Country: None (occurrence: None)
  Receive Date: 20120618
  Receipt Date: 20120618
  Transmission Date: 20120825
  Serious: Yes (Other)
  Sender: FDA-Public Use
  Company Number: None

PATIENT
  Age: 46 Year
  Sex: Female
  Weight: 81.6475 kg

DRUGS (3)
  1. REQUIP [Suspect]
  2. MIRAPEX [Suspect]
     Indication: RESTLESS LEGS SYNDROME
     Dosage: 1-2 2XS A DAY 1 IN A.M. - /1 IN P OTHER
     Route: 050
     Dates: start: 20110405, end: 20120615
  3. KLONOPIN [Suspect]

REACTIONS (10)
  - IMPAIRED WORK ABILITY [None]
  - SLEEP ATTACKS [None]
  - DEPRESSION [None]
  - SUICIDAL IDEATION [None]
  - COMPULSIONS [None]
  - PATHOLOGICAL GAMBLING [None]
  - CONDITION AGGRAVATED [None]
  - ECONOMIC PROBLEM [None]
  - FAMILY STRESS [None]
  - FEELING ABNORMAL [None]
